FAERS Safety Report 20529026 (Version 4)
Quarter: 2022Q1

REPORT INFORMATION
  Report Type: Spontaneous
  Country: US (occurrence: US)
  Receive Date: 20220228
  Receipt Date: 20220324
  Transmission Date: 20220423
  Serious: Yes (Hospitalization, Other)
  Sender: FDA-Public Use
  Company Number: US-PFIZER INC-202101401422

PATIENT
  Age: 71 Year
  Sex: Female
  Weight: 88.9 kg

DRUGS (11)
  1. VYNDAMAX [Suspect]
     Active Substance: TAFAMIDIS
     Indication: Amyloidosis
     Dosage: 61 MG, 1X/DAY
     Route: 048
     Dates: start: 202107
  2. BUMEX [Concomitant]
     Active Substance: BUMETANIDE
     Indication: Hypotension
     Dosage: 2 MG
  3. MAGNESIUM OXIDE [Concomitant]
     Active Substance: MAGNESIUM OXIDE
     Indication: Hypotension
     Dosage: 400 MG, 1X/DAY
  4. SPIRONOLACTONE [Concomitant]
     Active Substance: SPIRONOLACTONE
     Dosage: 25 MG, 1X/DAY
  5. MIDODRINE HYDROCHLORIDE [Concomitant]
     Active Substance: MIDODRINE HYDROCHLORIDE
     Indication: Hypotension
     Dosage: WITH WATER
     Route: 048
     Dates: start: 202106
  6. LECITHIN [Concomitant]
     Active Substance: LECITHIN
     Dosage: 1200 MG, (EACH PILLS THREE OF THOSE)
  7. VITAMIN E [Concomitant]
     Active Substance: .ALPHA.-TOCOPHEROL
     Dosage: THREE OF THOSE ONCE A DAY
  8. FISH OIL [Concomitant]
     Active Substance: FISH OIL
     Dosage: 2 DF, 1X/DAY
  9. NIACIN [Concomitant]
     Active Substance: NIACIN
     Indication: Blood cholesterol
     Dosage: 1000, 1X/DAY
  10. FOLIC ACID [Concomitant]
     Active Substance: FOLIC ACID
     Dosage: 1 MG
  11. VITAMIN C [Concomitant]
     Active Substance: ASCORBIC ACID
     Dosage: 1000 MG, 1X/DAY

REACTIONS (7)
  - Coronary artery thrombosis [Recovering/Resolving]
  - Atrial fibrillation [Recovering/Resolving]
  - Skin burning sensation [Unknown]
  - Varicella [Unknown]
  - Acarodermatitis [Unknown]
  - Weight decreased [Unknown]
  - Off label use [Unknown]

NARRATIVE: CASE EVENT DATE: 20210701
